FAERS Safety Report 7701483-1 (Version None)
Quarter: 2011Q3

REPORT INFORMATION
  Report Type: 
  Country: None (occurrence: None)
  Receive Date: 20110819
  Receipt Date: 20110819
  Transmission Date: 20111222
  Serious: Yes (Hospitalization)
  Sender: FDA-Public Use
  Company Number: None

PATIENT
  Sex: Male
  Weight: 83.6 kg

DRUGS (9)
  1. HYDROCHLOROTHIAZIDE [Concomitant]
  2. NAPROSYN [Concomitant]
  3. BEVACIZUMAB (RHUMAB VEGF) [Suspect]
     Dosage: 1316 MG
  4. DILTIAZEM [Concomitant]
  5. PACLITAXEL [Suspect]
     Dosage: 366 MG
  6. ALLEGRA [Concomitant]
  7. OXYCONTIN [Concomitant]
  8. CARBOPLATIN [Suspect]
     Dosage: 618 MG
  9. QUESTRAN [Concomitant]

REACTIONS (3)
  - WHITE BLOOD CELL COUNT INCREASED [None]
  - FLATULENCE [None]
  - ABDOMINAL PAIN [None]
